FAERS Safety Report 20933726 (Version 1)
Quarter: 2022Q2

REPORT INFORMATION
  Report Type: Report from Study
  Country: IT (occurrence: IT)
  Receive Date: 20220608
  Receipt Date: 20220608
  Transmission Date: 20220720
  Serious: Yes (Other)
  Sender: FDA-Public Use
  Company Number: None

PATIENT
  Age: 84 Year
  Sex: Male

DRUGS (12)
  1. FUROSEMIDE [Suspect]
     Active Substance: FUROSEMIDE
     Dosage: 25 MG, QD
     Route: 065
     Dates: start: 20220101, end: 20220427
  2. SILODOSIN [Suspect]
     Active Substance: SILODOSIN
     Dosage: 8 MG HARD CAPSULES
     Route: 065
     Dates: start: 20220101, end: 20220427
  3. TELMISARTAN [Suspect]
     Active Substance: TELMISARTAN
     Dosage: 40 MG TABLETS
     Route: 065
     Dates: start: 20220101, end: 20220427
  4. BISOPROLOL FUMARATE [Suspect]
     Active Substance: BISOPROLOL FUMARATE
     Dosage: 1.25 MG, QD
     Route: 048
     Dates: start: 20220101, end: 20220427
  5. NITROGLYCERIN [Suspect]
     Active Substance: NITROGLYCERIN
     Dosage: 10 MG, QD
     Route: 065
     Dates: start: 20220101, end: 20220427
  6. QUETIAPINE [Suspect]
     Active Substance: QUETIAPINE
     Route: 065
     Dates: start: 20220101, end: 20220427
  7. EDOXABAN TOSYLATE [Concomitant]
     Active Substance: EDOXABAN TOSYLATE
     Dosage: 30 MG FILM-COATED TABLETS
     Route: 065
  8. MEMANTINE HYDROCHLORIDE [Concomitant]
     Active Substance: MEMANTINE HYDROCHLORIDE
     Route: 065
  9. POTASSIUM CHLORIDE [Concomitant]
     Active Substance: POTASSIUM CHLORIDE
     Dosage: 600 MG EXTENDED-RELEASE TABS
     Route: 065
  10. Folina [Concomitant]
     Dosage: 5 MG SOFT CAPSULES
     Route: 065
  11. FLUTICASONE FUROATE\VILANTEROL TRIFENATATE [Concomitant]
     Active Substance: FLUTICASONE FUROATE\VILANTEROL TRIFENATATE
     Route: 065
  12. AVODART [Concomitant]
     Active Substance: DUTASTERIDE
     Route: 065

REACTIONS (2)
  - Syncope [Recovering/Resolving]
  - Hypotension [Recovering/Resolving]

NARRATIVE: CASE EVENT DATE: 20220427
